FAERS Safety Report 9286387 (Version 1)
Quarter: 2013Q2

REPORT INFORMATION
  Report Type: Spontaneous
  Country: US (occurrence: None)
  Receive Date: 20130510
  Receipt Date: 20130510
  Transmission Date: 20140414
  Serious: Yes (Disabling)
  Sender: FDA-Public Use
  Company Number: None

PATIENT
  Age: 77 Year
  Sex: Female
  Weight: 54.43 kg

DRUGS (1)
  1. CLINPRO [Suspect]
     Indication: DENTAL CARIES
     Dosage: 1 PEA SIZE AMOUNT ONCE A DAY; DURATION  4 WEEKS + 3 DAYS
     Route: 004
     Dates: start: 20130405, end: 20130407

REACTIONS (2)
  - Dysgeusia [None]
  - Dysgeusia [None]
